FAERS Safety Report 9132081 (Version 1)
Quarter: 2013Q1

REPORT INFORMATION
  Report Type: Spontaneous
  Country: DE (occurrence: IT)
  Receive Date: 20130301
  Receipt Date: 20130301
  Transmission Date: 20140127
  Serious: Yes (Other)
  Sender: FDA-Public Use
  Company Number: IT-FRI-1000042970

PATIENT
  Age: 81 Year
  Sex: Male

DRUGS (3)
  1. MEMANTINE [Suspect]
     Indication: DEMENTIA ALZHEIMER^S TYPE
     Dosage: 5 MG
     Route: 048
     Dates: start: 20130216, end: 20130217
  2. ZOLOFT [Concomitant]
     Dosage: 25 MG
     Route: 048
  3. CARIDOASPIRIN [Concomitant]
     Dosage: 100 MG
     Route: 048

REACTIONS (1)
  - Hypertensive crisis [Recovered/Resolved]
